FAERS Safety Report 9852042 (Version 1)
Quarter: 2013Q4

REPORT INFORMATION
  Report Type: Spontaneous
  Country: US (occurrence: None)
  Receive Date: 20131127
  Receipt Date: 20131127
  Transmission Date: 20140711
  Serious: Yes (Other)
  Sender: FDA-Public Use
  Company Number: 223224LEO

PATIENT
  Age: 79 Year
  Sex: Male

DRUGS (10)
  1. PICATO [Suspect]
     Indication: PRECANCEROUS CELLS PRESENT
     Dosage: ONE TUBE ONCE DAILY, SCALP
     Dates: start: 20130810, end: 20130811
  2. NIASPAN (NICOTINIC ACID) [Concomitant]
  3. DIOVAN (VALSARTAN) [Concomitant]
  4. RANITIDINE (RANITIDINE) [Concomitant]
  5. CARVEDILOL (CARVEDILOL) [Concomitant]
  6. METFORMIN (METFORMIN) [Concomitant]
  7. WARFARIN (WARFARIN) [Concomitant]
  8. VALACYCLOVIR (VALACICLOVIR HYDROCHLORIDE) [Concomitant]
  9. FUROSEMIDE (FUROSEMIDE) [Concomitant]
  10. DOXAZOSIN (DOXAZOSIN) [Concomitant]

REACTIONS (3)
  - Application site vesicles [None]
  - Application site pain [None]
  - Incorrect dose administered [None]
